FAERS Safety Report 5006519-7 (Version None)
Quarter: 2006Q2

REPORT INFORMATION
  Report Type: 
  Country: None (occurrence: None)
  Receive Date: 20060519
  Receipt Date: 20060130
  Transmission Date: 20061013
  Serious: Yes (Disabling)
  Sender: FDA-Public Use
  Company Number: US-SANOFI-SYNTHELABO-A03200600619

PATIENT
  Sex: Female

DRUGS (2)
  1. PLAVIX [Suspect]
     Indication: CORONARY ARTERIAL STENT INSERTION
     Route: 048
     Dates: start: 20050601, end: 20050901
  2. PLAVIX [Suspect]
     Indication: CORONARY ARTERY DISEASE
     Route: 048
     Dates: start: 20050601, end: 20050901

REACTIONS (7)
  - ABDOMINAL PAIN [None]
  - DIZZINESS [None]
  - FLUID RETENTION [None]
  - MUSCLE SPASMS [None]
  - NAUSEA [None]
  - VERTIGO [None]
  - YELLOW SKIN [None]
